FAERS Safety Report 8842289 (Version 1)
Quarter: 2012Q4

REPORT INFORMATION
  Report Type: Spontaneous
  Country: US (occurrence: None)
  Receive Date: 20121015
  Receipt Date: 20121015
  Transmission Date: 20130627
  Serious: Yes (Life-Threatening, Disabling)
  Sender: FDA-Public Use
  Company Number: None

PATIENT
  Age: 36 Year
  Sex: Male
  Weight: 72.58 kg

DRUGS (2)
  1. KLONOPIN [Suspect]
     Indication: PANIC ATTACKS
     Route: 048
  2. KLONOPIN [Suspect]
     Indication: ALTERED MOOD
     Route: 048

REACTIONS (3)
  - Therapy cessation [None]
  - Convulsion [None]
  - Apparent death [None]
